FAERS Safety Report 26109300 (Version 3)
Quarter: 2025Q4

REPORT INFORMATION
  Report Type: Report from Study
  Country: US (occurrence: US)
  Receive Date: 20251201
  Receipt Date: 20251225
  Transmission Date: 20260118
  Serious: No
  Sender: MALLINCKRODT
  Company Number: US-MALLINCKRODT-MNK202507593

PATIENT
  Age: 58 Year
  Sex: Male

DRUGS (5)
  1. CORTICOTROPIN [Suspect]
     Active Substance: CORTICOTROPIN
     Indication: Keratitis
     Route: 058
     Dates: start: 20251103
  2. MIEBO [Concomitant]
     Active Substance: PERFLUOROHEXYLOCTANE
     Dosage: 1.338 GM/ML
  3. DOXYCYCLINE HYCLATE [Concomitant]
     Active Substance: DOXYCYCLINE HYCLATE
     Dosage: UNKNOWN
  4. TYRVAYA [Concomitant]
     Active Substance: VARENICLINE TARTRATE
     Dosage: 0.03 MG/ACT
  5. VEVYE [Concomitant]
     Active Substance: CYCLOSPORINE
     Dosage: UNKNOWN

REACTIONS (8)
  - Contusion [Not Recovered/Not Resolved]
  - Vision blurred [Unknown]
  - Urticaria [Unknown]
  - Injection site discolouration [Unknown]
  - Injection site mass [Not Recovered/Not Resolved]
  - Insomnia [Recovering/Resolving]
  - Injection site bruising [Unknown]
  - Injection site urticaria [Not Recovered/Not Resolved]

NARRATIVE: CASE EVENT DATE: 20250101
